FAERS Safety Report 7886544-9 (Version None)
Quarter: 2011Q4

REPORT INFORMATION
  Report Type: 
  Country: None (occurrence: None)
  Receive Date: 20111102
  Receipt Date: 20110707
  Transmission Date: 20120403
  Serious: No
  Sender: FDA-Public Use
  Company Number: US-AMGEN-USASP2011029506

PATIENT
  Age: 57 Year
  Sex: Female

DRUGS (4)
  1. ENBREL [Suspect]
     Indication: RHEUMATOID ARTHRITIS
     Dosage: 50 MG, QWK
     Route: 058
     Dates: start: 19960101, end: 20110317
  2. REMICADE [Concomitant]
     Dosage: UNK
  3. ORENCIA [Concomitant]
     Dosage: UNK
  4. ENBREL [Suspect]
     Dosage: 50 MG, QWK
     Dates: start: 19960101, end: 20070504

REACTIONS (7)
  - UPPER RESPIRATORY TRACT INFECTION [None]
  - DENTAL CARIES [None]
  - INJECTION SITE RASH [None]
  - HYPERSENSITIVITY [None]
  - INJECTION SITE HAEMATOMA [None]
  - MALAISE [None]
  - FLUID RETENTION [None]
